FAERS Safety Report 5152353-7 (Version None)
Quarter: 2006Q4

REPORT INFORMATION
  Report Type: 
  Country: None (occurrence: None)
  Receive Date: 20061116
  Receipt Date: 20061110
  Transmission Date: 20070319
  Serious: Yes (Life-Threatening, Hospitalization)
  Sender: FDA-Public Use
  Company Number: 2006PK02299

PATIENT
  Age: 59 Year
  Sex: Female
  Weight: 60 kg

DRUGS (3)
  1. NAROPIN [Suspect]
     Route: 053
     Dates: start: 20061107, end: 20061107
  2. EUTHYROX [Concomitant]
  3. PROGYNON [Concomitant]
     Indication: PREMATURE MENOPAUSE

REACTIONS (2)
  - CIRCULATORY COLLAPSE [None]
  - GRAND MAL CONVULSION [None]
